FAERS Safety Report 11203416 (Version 3)
Quarter: 2015Q4

REPORT INFORMATION
  Report Type: Report from Study
  Country: AU (occurrence: AU)
  Receive Date: 20150619
  Receipt Date: 20151125
  Transmission Date: 20160304
  Serious: Yes (Other)
  Sender: FDA-Public Use
  Company Number: AU-INCYTE CORPORATION-2015IN002721

PATIENT
  Age: 72 Year
  Sex: Male

DRUGS (2)
  1. JAKAFI [Suspect]
     Active Substance: RUXOLITINIB
     Indication: MYELOFIBROSIS
     Dosage: 20 MG, BID
     Route: 048
     Dates: start: 20140210
  2. JAKAFI [Suspect]
     Active Substance: RUXOLITINIB
     Dosage: UNK
     Route: 048
     Dates: start: 20150609

REACTIONS (10)
  - White blood cell count increased [Unknown]
  - Neutrophil count increased [Unknown]
  - Protein total increased [Unknown]
  - Platelet count decreased [Recovered/Resolved]
  - Globulins increased [Unknown]
  - Blast cell count increased [Unknown]
  - Gamma-glutamyltransferase increased [Unknown]
  - Skin cancer [Unknown]
  - Blood lactate dehydrogenase increased [Unknown]
  - Glomerular filtration rate decreased [Unknown]

NARRATIVE: CASE EVENT DATE: 201412
